FAERS Safety Report 9596644 (Version 1)
Quarter: 2013Q4

REPORT INFORMATION
  Report Type: Report from Study
  Country: US (occurrence: US)
  Receive Date: 20131004
  Receipt Date: 20131004
  Transmission Date: 20140711
  Serious: Yes (Congenital Anomaly)
  Sender: FDA-Public Use
  Company Number: US-TEVA-435649USA

PATIENT
  Sex: Female

DRUGS (11)
  1. LAMIVUDINE AND ZIDOVUDINE [Suspect]
     Route: 064
  2. LAMIVUDINE AND ZIDOVUDINE [Suspect]
  3. LAMIVUDINE AND ZIDOVUDINE [Suspect]
  4. LAMIVUDINE AND ZIDOVUDINE [Suspect]
  5. LAMIVUDINE AND ZIDOVUDINE [Suspect]
  6. LAMIVUDINE AND ZIDOVUDINE [Suspect]
  7. PREZISTA [Suspect]
     Route: 064
  8. LEXIVA [Suspect]
     Route: 064
  9. ZIDOVUDINE [Suspect]
     Route: 064
  10. NORVIR [Suspect]
     Route: 064
  11. VIREAD [Suspect]
     Route: 064

REACTIONS (3)
  - Micrognathia [Unknown]
  - Retrognathia [Unknown]
  - Foetal exposure during pregnancy [Unknown]
